FAERS Safety Report 6939196-6 (Version None)
Quarter: 2010Q3

REPORT INFORMATION
  Report Type: 
  Country: None (occurrence: None)
  Receive Date: 20100824
  Receipt Date: 20100820
  Transmission Date: 20110219
  Serious: Yes (Death, Other)
  Sender: FDA-Public Use
  Company Number: KR-BRISTOL-MYERS SQUIBB COMPANY-15249063

PATIENT
  Age: 42 Year
  Sex: Male

DRUGS (2)
  1. CISPLATIN [Suspect]
     Indication: OESOPHAGEAL ADENOCARCINOMA
  2. FLUOROURACIL [Suspect]
     Indication: OESOPHAGEAL ADENOCARCINOMA
     Dosage: ON DAY 1 -3

REACTIONS (5)
  - ARTERIAL THROMBOSIS [None]
  - INTESTINAL INFARCTION [None]
  - INTRACARDIAC THROMBUS [None]
  - RHABDOMYOLYSIS [None]
  - SEPSIS [None]
